FAERS Safety Report 9921416 (Version 2)
Quarter: 2014Q1

REPORT INFORMATION
  Report Type: Report from Study
  Country: DK (occurrence: DK)
  Receive Date: 20140225
  Receipt Date: 20140225
  Transmission Date: 20141002
  Serious: Yes (Hospitalization, Other)
  Sender: FDA-Public Use
  Company Number: DK-ROCHE-1337967

PATIENT
  Age: 78 Year
  Sex: Female
  Weight: 64.3 kg

DRUGS (11)
  1. OBINUTUZUMAB [Suspect]
     Indication: DIFFUSE LARGE B-CELL LYMPHOMA
     Dosage: DOSE CONCENTRATION OF LAST OBINUTUZUMAB TAKEN: 4MG/ML, DATE OF MOST RECENT DOSE OF OBINUTUZUMAB PRIO
     Route: 042
     Dates: start: 20131213
  2. CYCLOPHOSPHAMIDE [Suspect]
     Indication: DIFFUSE LARGE B-CELL LYMPHOMA
     Dosage: DATE OF MOST RECENT DOSE OF OBINUTUZUMAB PRIOR TO SAE: 24/JAN/2014
     Route: 042
     Dates: start: 20131213
  3. DOXORUBICIN [Suspect]
     Indication: DIFFUSE LARGE B-CELL LYMPHOMA
     Dosage: DATE OF MOST RECENT DOSE OF DOXORUBICIN PRIOR TO SAE: 24/JAN/2014
     Route: 042
     Dates: start: 20131213
  4. VINCRISTINE [Suspect]
     Indication: DIFFUSE LARGE B-CELL LYMPHOMA
     Dosage: DATE OF MOST RECENT DOSE OF VINCRISTINE PRIOR TO SAE: 24/JAN/2014, ROUTE: INTRAVENOUS PUSH
     Route: 042
     Dates: start: 20131213
  5. PREDNISONE [Suspect]
     Indication: DIFFUSE LARGE B-CELL LYMPHOMA
     Dosage: DATE OF MOST RECENT DOSE OF PREDNISONE PRIOR TO SAE: 24/JAN/2014
     Route: 048
     Dates: start: 20131213
  6. AMLODIPIN [Concomitant]
     Indication: HYPERTENSION
     Route: 065
     Dates: start: 20140113
  7. LOSARTAN [Concomitant]
     Indication: HYPERTENSION
     Route: 065
     Dates: start: 20140113
  8. APOVIT D-VITAMIN [Concomitant]
     Indication: VITAMIN D DEFICIENCY
  9. COD LIVER OIL [Concomitant]
     Indication: VITAMIN SUPPLEMENTATION
  10. ALLOPURINOL [Concomitant]
     Indication: TUMOUR LYSIS SYNDROME
     Route: 065
     Dates: start: 20131226
  11. FORTUM [Concomitant]
     Indication: INFECTION
     Route: 065
     Dates: start: 20131220, end: 20131227

REACTIONS (2)
  - Anaemia [Recovered/Resolved]
  - Fatigue [Recovered/Resolved]
